FAERS Safety Report 4404449-2 (Version None)
Quarter: 2004Q3

REPORT INFORMATION
  Report Type: 
  Country: None (occurrence: None)
  Receive Date: 20040721
  Receipt Date: 20040721
  Transmission Date: 20050211
  Serious: Yes (Hospitalization)
  Sender: FDA-Public Use
  Company Number: None

PATIENT
  Age: 60 Year
  Sex: Male
  Weight: 80.6 kg

DRUGS (7)
  1. TARCEVA NEVER RECEIVED [Suspect]
     Indication: GLIOBLASTOMA MULTIFORME
  2. TEMODAR [Suspect]
     Indication: GLIOBLASTOMA MULTIFORME
  3. ZANTAC [Concomitant]
  4. ZOCOR [Concomitant]
  5. TYLENOL [Concomitant]
  6. DECADRON [Concomitant]
  7. TYLENOL W/ CODEINE NO. 3 [Concomitant]

REACTIONS (1)
  - NO ADVERSE EFFECT [None]
